FAERS Safety Report 17107737 (Version 1)
Quarter: 2019Q4

REPORT INFORMATION
  Report Type: Spontaneous
  Country: IT (occurrence: IT)
  Receive Date: 20191204
  Receipt Date: 20191204
  Transmission Date: 20200122
  Serious: Yes (Hospitalization)
  Sender: FDA-Public Use
  Company Number: IT-SA-2019SA331809

PATIENT
  Age: 85 Year
  Sex: Female

DRUGS (8)
  1. LASIX [Concomitant]
     Active Substance: FUROSEMIDE
     Dosage: 500 MG, UNK
  2. LANOXIN [Concomitant]
     Active Substance: DIGOXIN
     Dosage: 125 UG, UNK
  3. LUVION [CANRENONE] [Concomitant]
     Active Substance: CANRENONE
     Dosage: UNK, UNK
  4. MEDROL [Concomitant]
     Active Substance: METHYLPREDNISOLONE
  5. BISOPROLOL FUMARATE. [Concomitant]
     Active Substance: BISOPROLOL FUMARATE
     Dosage: 2.5 MG, UNK
  6. ENOXAPARIN SODIUM. [Suspect]
     Active Substance: ENOXAPARIN SODIUM
     Indication: ATRIAL FIBRILLATION
     Dosage: 6000 KIU, QD
     Route: 058
  7. OMEPRAZOLE. [Concomitant]
     Active Substance: OMEPRAZOLE
  8. REVATIO [Concomitant]
     Active Substance: SILDENAFIL CITRATE
     Dosage: UNK, UNK

REACTIONS (2)
  - Abdominal wall haematoma [Unknown]
  - Anaemia [Unknown]

NARRATIVE: CASE EVENT DATE: 20191009
